FAERS Safety Report 16151674 (Version 1)
Quarter: 2019Q2

REPORT INFORMATION
  Report Type: Spontaneous
  Country: FR (occurrence: FR)
  Receive Date: 20190403
  Receipt Date: 20190403
  Transmission Date: 20190711
  Serious: Yes (Other)
  Sender: FDA-Public Use
  Company Number: FR-SUN PHARMACEUTICAL INDUSTRIES LTD-2019RR-203921

PATIENT
  Age: 35 Year
  Sex: Male

DRUGS (2)
  1. PAROXETINE. [Suspect]
     Active Substance: PAROXETINE
     Indication: DEPRESSION
     Dosage: 20 MILLIGRAM, DAILY
     Route: 048
     Dates: start: 2018
  2. PRIMAQUINE (DIPHOSPHATE DE) [Interacting]
     Active Substance: PRIMAQUINE PHOSPHATE
     Indication: MALARIA
     Dosage: 30 MILLIGRAM, DAILY
     Route: 048
     Dates: start: 20190110, end: 20190123

REACTIONS (3)
  - Drug interaction [Not Recovered/Not Resolved]
  - Drug ineffective [Not Recovered/Not Resolved]
  - Plasmodium vivax infection [Recovering/Resolving]

NARRATIVE: CASE EVENT DATE: 201902
